FAERS Safety Report 9233210 (Version 1)
Quarter: 2013Q2

REPORT INFORMATION
  Report Type: Spontaneous
  Country: US (occurrence: US)
  Receive Date: 20130416
  Receipt Date: 20130416
  Transmission Date: 20140414
  Serious: Yes (Other)
  Sender: FDA-Public Use
  Company Number: US-BANPHARM-20130863

PATIENT
  Age: 61 Year
  Sex: Female
  Weight: 72.57 kg

DRUGS (7)
  1. ALEVE LIQUID GELS 220MG [Suspect]
     Indication: ARTHRITIS
     Dosage: 2 DF, QD,
     Route: 048
     Dates: start: 2008, end: 2011
  2. OMEGA 3 FISH OIL [Concomitant]
  3. ENERGY PLUS MULTIVITAMIN [Concomitant]
  4. METFORMIN [Concomitant]
  5. LISINOPRIL [Concomitant]
  6. ATENOLOL [Concomitant]
  7. SIMVASTATIN [Concomitant]

REACTIONS (5)
  - Haematochezia [Recovered/Resolved]
  - Vomiting [Recovered/Resolved]
  - Dyspepsia [Recovered/Resolved]
  - Nausea [Recovered/Resolved]
  - Incorrect drug administration duration [Unknown]
